FAERS Safety Report 8532975-3 (Version None)
Quarter: 2012Q3

REPORT INFORMATION
  Report Type: 
  Country: None (occurrence: None)
  Receive Date: 20120724
  Receipt Date: 20120718
  Transmission Date: 20120928
  Serious: Yes (Other)
  Sender: FDA-Public Use
  Company Number: US-JNJFOC-20120613493

PATIENT
  Age: 5 Decade
  Sex: Male

DRUGS (2)
  1. NUCYNTA ER [Suspect]
     Indication: ANALGESIC THERAPY
     Dosage: ONE PER ONE DAY
     Route: 048
     Dates: start: 20120601, end: 20120601
  2. NUCYNTA ER [Suspect]
     Dosage: 2 PER ONE DAY
     Route: 048
     Dates: start: 20120601, end: 20120625

REACTIONS (3)
  - SOMNOLENCE [None]
  - CHEST PAIN [None]
  - DYSPNOEA [None]
